FAERS Safety Report 16213638 (Version 1)
Quarter: 2019Q2

REPORT INFORMATION
  Report Type: Spontaneous
  Country: ES (occurrence: ES)
  Receive Date: 20190418
  Receipt Date: 20190418
  Transmission Date: 20190711
  Serious: Yes (Other)
  Sender: FDA-Public Use
  Company Number: ES-UNICHEM PHARMACEUTICALS (USA) INC-UCM201904-000131

PATIENT
  Age: 70 Year
  Sex: Male

DRUGS (15)
  1. METHYLPREDNISOLONE. [Suspect]
     Active Substance: METHYLPREDNISOLONE
     Dosage: 4 MONTHS EARLIER
  2. FUROSEMIDE. [Suspect]
     Active Substance: FUROSEMIDE
  3. DOXAZOSIN [Suspect]
     Active Substance: DOXAZOSIN\DOXAZOSIN MESYLATE
  4. INSULIN [Concomitant]
     Active Substance: INSULIN NOS
  5. TOPIRAMATE. [Suspect]
     Active Substance: TOPIRAMATE
     Indication: AFFECTIVE DISORDER
  6. METFORMIN [Suspect]
     Active Substance: METFORMIN HYDROCHLORIDE
  7. PREDNISONE. [Concomitant]
     Active Substance: PREDNISONE
  8. TOPIRAMATE. [Suspect]
     Active Substance: TOPIRAMATE
  9. HYDROCHLOROTHIAZIDE. [Suspect]
     Active Substance: HYDROCHLOROTHIAZIDE
  10. GLIMEPIRIDE. [Suspect]
     Active Substance: GLIMEPIRIDE
  11. SITAGLIPTIN [Suspect]
     Active Substance: SITAGLIPTIN
  12. CARBIDOPA/LEVODOPA [Suspect]
     Active Substance: CARBIDOPA\LEVODOPA
  13. OXYBUTYNIN. [Suspect]
     Active Substance: OXYBUTYNIN CHLORIDE
  14. EPROSARTAN [Suspect]
     Active Substance: EPROSARTAN
  15. PRIMIDONE. [Suspect]
     Active Substance: PRIMIDONE

REACTIONS (3)
  - Cholestasis [Recovering/Resolving]
  - Drug interaction [Recovering/Resolving]
  - Hepatotoxicity [Recovering/Resolving]
